FAERS Safety Report 8410059-2 (Version None)
Quarter: 2012Q2

REPORT INFORMATION
  Report Type: 
  Country: None (occurrence: None)
  Receive Date: 20120529
  Receipt Date: 20120508
  Transmission Date: 20120825
  Serious: Yes (Other)
  Sender: FDA-Public Use
  Company Number: 2280705-2012-00066

PATIENT
  Sex: Male

DRUGS (1)
  1. ORAJEL DAYTIME/NIGHTTIME TWIN PACK ORAL PAIN [Suspect]
     Indication: TEETHING
     Dosage: ORAL APPLICATION
     Dates: start: 20120507

REACTIONS (2)
  - MUSCLE TWITCHING [None]
  - TREMOR [None]
